FAERS Safety Report 8808910 (Version 1)
Quarter: 2012Q4

REPORT INFORMATION
  Report Type: 
  Country: US (occurrence: US)
  Receive Date: 20120926
  Receipt Date: 20120926
  Transmission Date: 20130627
  Serious: Yes (Other)
  Sender: FDA-Public Use
  Company Number: US-NOVOPROD-360088

PATIENT
  Age: 21 Year
  Sex: Female
  Weight: 56.69 kg

DRUGS (2)
  1. NOVOLOG [Suspect]
     Indication: TYPE 1 DIABETES MELLITUS
     Dosage: UNK
     Route: 058
     Dates: start: 2005
  2. TAPAZOL                            /00022901/ [Concomitant]
     Indication: BASEDOW^S DISEASE
     Dosage: UNK
     Route: 048
     Dates: start: 201206

REACTIONS (1)
  - Complex partial seizures [Not Recovered/Not Resolved]
